FAERS Safety Report 6305010-5 (Version None)
Quarter: 2009Q3

REPORT INFORMATION
  Report Type: 
  Country: None (occurrence: None)
  Receive Date: 20090811
  Receipt Date: 20090728
  Transmission Date: 20100115
  Serious: Yes (Life-Threatening, Hospitalization)
  Sender: FDA-Public Use
  Company Number: RU-GENENTECH-288160

PATIENT
  Age: 56 Year
  Sex: Female

DRUGS (2)
  1. AVASTIN [Suspect]
     Indication: COLORECTAL CANCER METASTATIC
     Dosage: 5 MG/KG, 2/MONTH
     Route: 042
     Dates: start: 20081001, end: 20090101
  2. XELODA [Suspect]
     Indication: COLORECTAL CANCER METASTATIC
     Dosage: 2500 MG/M2, UNK
     Route: 048
     Dates: start: 20081001, end: 20090101

REACTIONS (5)
  - ABDOMINAL PAIN UPPER [None]
  - BUDD-CHIARI SYNDROME [None]
  - CONSTIPATION [None]
  - NAUSEA [None]
  - VOMITING [None]
